FAERS Safety Report 16677582 (Version 2)
Quarter: 2019Q3

REPORT INFORMATION
  Report Type: Spontaneous
  Country: US (occurrence: US)
  Receive Date: 20190807
  Receipt Date: 20190808
  Transmission Date: 20191004
  Serious: Yes (Other)
  Sender: FDA-Public Use
  Company Number: US-PFIZER INC-2019336958

PATIENT
  Age: 54 Year
  Sex: Male

DRUGS (2)
  1. GABAPENTIN. [Suspect]
     Active Substance: GABAPENTIN
     Dosage: UNK
  2. DULOXETINE HYDROCHLORIDE. [Suspect]
     Active Substance: DULOXETINE HYDROCHLORIDE
     Dosage: UNK

REACTIONS (8)
  - Neuropathy peripheral [Unknown]
  - Neoplasm malignant [Unknown]
  - Insomnia [Unknown]
  - Gait inability [Unknown]
  - Drug ineffective [Unknown]
  - Dysstasia [Unknown]
  - Paraesthesia [Unknown]
  - Restlessness [Unknown]
